FAERS Safety Report 6681178-6 (Version None)
Quarter: 2010Q2

REPORT INFORMATION
  Report Type: 
  Country: None (occurrence: None)
  Receive Date: 20100413
  Receipt Date: 20100413
  Transmission Date: 20101027
  Serious: Yes (Hospitalization)
  Sender: FDA-Public Use
  Company Number: None

PATIENT
  Age: 58 Year
  Sex: Male

DRUGS (1)
  1. ZOLPIDEM [Suspect]
     Indication: SLEEP DISORDER
     Dosage: 12.5 MG AT BEDTIME PO
     Route: 048
     Dates: start: 20091223, end: 20100122

REACTIONS (2)
  - FEAR [None]
  - SOMNAMBULISM [None]
